FAERS Safety Report 6058633-5 (Version None)
Quarter: 2009Q1

REPORT INFORMATION
  Report Type: 
  Country: None (occurrence: None)
  Receive Date: 20090130
  Receipt Date: 20081128
  Transmission Date: 20090719
  Serious: Yes (Hospitalization, Other)
  Sender: FDA-Public Use
  Company Number: NL-PFIZER INC-2008093364

PATIENT

DRUGS (2)
  1. ESTRACYT [Suspect]
     Indication: PROSTATE CANCER METASTATIC
     Route: 048
  2. ZOLADEX [Concomitant]

REACTIONS (1)
  - DEMENTIA [None]
